FAERS Safety Report 9518027 (Version 1)
Quarter: 2013Q3

REPORT INFORMATION
  Report Type: Spontaneous
  Country: US (occurrence: US)
  Receive Date: 20130912
  Receipt Date: 20130912
  Transmission Date: 20140515
  Serious: No
  Sender: FDA-Public Use
  Company Number: US-PFIZER INC-2013260529

PATIENT
  Sex: Female

DRUGS (2)
  1. VIAGRA [Suspect]
     Indication: SCLERODERMA
     Dosage: 25 MG (HALF 50MG TABLET), 2X/DAY
  2. VIAGRA [Suspect]
     Indication: RAYNAUD^S PHENOMENON

REACTIONS (4)
  - Headache [Unknown]
  - Abdominal discomfort [Unknown]
  - Hunger [Unknown]
  - Off label use [Unknown]
